FAERS Safety Report 6489093-8 (Version None)
Quarter: 2009Q4

REPORT INFORMATION
  Report Type: 
  Country: None (occurrence: None)
  Receive Date: 20091210
  Receipt Date: 20091204
  Transmission Date: 20100525
  Serious: Yes (Death)
  Sender: FDA-Public Use
  Company Number: JP-ELI_LILLY_AND_COMPANY-JP200909001400

PATIENT
  Sex: Male
  Weight: 48 kg

DRUGS (11)
  1. ALIMTA [Suspect]
     Indication: LUNG ADENOCARCINOMA RECURRENT
     Dosage: 500 MG/M2, OTHER
     Route: 042
     Dates: start: 20090709, end: 20090807
  2. PANVITAN [Concomitant]
     Dosage: 1 G, DAILY (1/D)
     Route: 048
     Dates: start: 20090625
  3. COBALIN-H [Concomitant]
     Dosage: 1 MG, DAILY (1/D)
     Route: 030
     Dates: start: 20090625, end: 20090625
  4. DEXART [Concomitant]
     Indication: PROPHYLAXIS
     Dosage: 8 MG, DAILY (1/D)
     Route: 042
     Dates: start: 20090807, end: 20090807
  5. DECADRON                                /CAN/ [Concomitant]
     Indication: PROPHYLAXIS
     Dosage: 8 MG, DAILY (1/D)
     Route: 048
     Dates: start: 20090809, end: 20090811
  6. LOXONIN [Concomitant]
     Dosage: UNK, UNKNOWN
     Route: 065
  7. NOVAMIN [Concomitant]
     Dosage: UNK, UNKNOWN
     Route: 065
  8. GASTER [Concomitant]
     Dosage: UNK, UNKNOWN
     Route: 065
  9. OXYCONTIN [Concomitant]
     Dosage: UNK, UNKNOWN
     Route: 048
  10. OPSO [Concomitant]
     Dosage: UNK, UNKNOWN
     Route: 048
  11. MAGLAX [Concomitant]
     Dosage: UNK, UNKNOWN
     Route: 048

REACTIONS (6)
  - HAEMATOCRIT DECREASED [None]
  - INTERSTITIAL LUNG DISEASE [None]
  - LYMPHOCYTE COUNT DECREASED [None]
  - NEUTROPHIL COUNT DECREASED [None]
  - PNEUMONIA [None]
  - WHITE BLOOD CELL COUNT DECREASED [None]
